FAERS Safety Report 13428692 (Version 1)
Quarter: 2017Q2

REPORT INFORMATION
  Report Type: Spontaneous
  Country: GB (occurrence: GB)
  Receive Date: 20170411
  Receipt Date: 20170411
  Transmission Date: 20170830
  Serious: Yes (Other)
  Sender: FDA-Public Use
  Company Number: GB-MYLANLABS-2017M1022084

PATIENT

DRUGS (6)
  1. AMILORIDE [Suspect]
     Active Substance: AMILORIDE
     Indication: HYPERALDOSTERONISM
     Route: 065
  2. EPLERENONE. [Suspect]
     Active Substance: EPLERENONE
     Dosage: 200 MG/DAY IN DIVIDED DOSE
     Route: 065
  3. EPLERENONE. [Suspect]
     Active Substance: EPLERENONE
     Indication: HYPERALDOSTERONISM
     Dosage: 50 MG/DAY, INCREASED TO 200 MG/DAY IN DIVIDED DOSE
     Route: 065
  4. POTASSIUM [Suspect]
     Active Substance: POTASSIUM
     Indication: HYPERALDOSTERONISM
     Route: 048
  5. DOXAZOSIN [Suspect]
     Active Substance: DOXAZOSIN\DOXAZOSIN MESYLATE
     Indication: HYPERALDOSTERONISM
     Route: 065
  6. METHYLDOPA. [Suspect]
     Active Substance: METHYLDOPA
     Indication: HYPERALDOSTERONISM
     Route: 065

REACTIONS (3)
  - Pre-eclampsia [Unknown]
  - Premature delivery [Recovered/Resolved]
  - Maternal exposure during pregnancy [Recovered/Resolved]
